FAERS Safety Report 8268553-3 (Version None)
Quarter: 2012Q2

REPORT INFORMATION
  Report Type: 
  Country: None (occurrence: None)
  Receive Date: 20120409
  Receipt Date: 20120330
  Transmission Date: 20120825
  Serious: Yes (Other)
  Sender: FDA-Public Use
  Company Number: US-CELGENEUS-163-22393-12040296

PATIENT
  Sex: Male

DRUGS (1)
  1. ISTODAX [Suspect]
     Route: 065

REACTIONS (1)
  - ORGANISING PNEUMONIA [None]
